FAERS Safety Report 5825766-5 (Version None)
Quarter: 2008Q3

REPORT INFORMATION
  Report Type: 
  Country: None (occurrence: None)
  Receive Date: 20080723
  Receipt Date: 20080714
  Transmission Date: 20090109
  Serious: Yes (Other)
  Sender: FDA-Public Use
  Company Number: JHP200800187

PATIENT
  Age: 29 Year
  Sex: Female

DRUGS (9)
  1. PITOCIN [Suspect]
     Indication: POSTPARTUM HAEMORRHAGE
     Dosage: 5 UNIT, BOLUS, IV BOLUS
     Route: 040
  2. LABETALOL HCL (LABETALOL HYDROCHLORIDE) [Concomitant]
  3. MAGNESIUM SULFATE [Concomitant]
  4. SODIUM CITRATE [Concomitant]
  5. CLINDAMYCIN HCL [Concomitant]
  6. FAMOTIDINE [Concomitant]
  7. BUPIVACAINE [Concomitant]
  8. FENTANYL [Concomitant]
  9. MORPHINE SULFATE [Concomitant]

REACTIONS (6)
  - CARDIAC OUTPUT INCREASED [None]
  - HYPOTENSION [None]
  - MEAN ARTERIAL PRESSURE DECREASED [None]
  - POSTPARTUM HAEMORRHAGE [None]
  - STROKE VOLUME INCREASED [None]
  - VASCULAR RESISTANCE SYSTEMIC DECREASED [None]
